FAERS Safety Report 7569911-2 (Version None)
Quarter: 2011Q2

REPORT INFORMATION
  Report Type: 
  Country: None (occurrence: None)
  Receive Date: 20110624
  Receipt Date: 20110613
  Transmission Date: 20111010
  Serious: Yes (Disabling, Other)
  Sender: FDA-Public Use
  Company Number: JP-JNJFOC-20110305587

PATIENT
  Sex: Male

DRUGS (8)
  1. MONTELUKAST SODIUM [Concomitant]
     Indication: BRONCHITIS
     Route: 048
     Dates: start: 20110224, end: 20110228
  2. NORVASC [Concomitant]
     Indication: HYPERTENSION
     Route: 048
  3. MUCODYNE [Concomitant]
     Indication: BRONCHITIS
     Route: 048
     Dates: start: 20110221, end: 20110228
  4. ASTOMIN [Concomitant]
     Indication: BRONCHITIS
     Route: 048
     Dates: start: 20110221, end: 20110224
  5. ACETAMINOPHEN [Concomitant]
     Indication: PYREXIA
     Route: 048
  6. LEVOFLOXACIN [Suspect]
     Indication: BRONCHITIS
     Route: 048
     Dates: start: 20110228, end: 20110228
  7. TELMISARTAN [Concomitant]
     Indication: HYPERTENSION
     Route: 048
  8. CLARITHROMYCIN [Concomitant]
     Indication: BRONCHITIS
     Route: 048
     Dates: start: 20110221, end: 20110224

REACTIONS (4)
  - ANAPHYLACTOID REACTION [None]
  - STEVENS-JOHNSON SYNDROME [None]
  - RENAL IMPAIRMENT [None]
  - HEPATIC FUNCTION ABNORMAL [None]
